FAERS Safety Report 10020891 (Version 2)
Quarter: 2014Q1

REPORT INFORMATION
  Report Type: Spontaneous
  Country: ES (occurrence: ES)
  Receive Date: 20140319
  Receipt Date: 20140331
  Transmission Date: 20141002
  Serious: Yes (Death, Other)
  Sender: FDA-Public Use
  Company Number: ES-JNJFOC-20140303952

PATIENT
  Sex: 0

DRUGS (1)
  1. NORELGESTROMIN [Suspect]
     Indication: CONTRACEPTION
     Route: 064
     Dates: start: 2012, end: 2012

REACTIONS (2)
  - Foetal exposure during pregnancy [Recovered/Resolved]
  - Foetal heart rate abnormal [Fatal]
